FAERS Safety Report 9132213 (Version 1)
Quarter: 2013Q1

REPORT INFORMATION
  Report Type: Spontaneous
  Country: DE (occurrence: DE)
  Receive Date: 20130208
  Receipt Date: 20130208
  Transmission Date: 20140127
  Serious: Yes (Hospitalization)
  Sender: FDA-Public Use
  Company Number: PHHY2013DE010218

PATIENT
  Age: 56 Year
  Sex: Male
  Weight: 90 kg

DRUGS (4)
  1. HEPARIN [Suspect]
     Dosage: 10 MG/KG PER HOUR
     Route: 042
  2. ENOXAPARIN [Suspect]
     Indication: PROPHYLAXIS
     Route: 058
  3. TACROLIMUS [Concomitant]
     Indication: IMMUNOSUPPRESSION
  4. PREDNISOLONE [Concomitant]
     Indication: IMMUNOSUPPRESSION

REACTIONS (17)
  - Acute hepatic failure [Recovered/Resolved]
  - Lactic acidosis [Recovered/Resolved]
  - Multi-organ failure [Recovered/Resolved]
  - Transplant failure [Recovered/Resolved]
  - Liver disorder [Recovered/Resolved]
  - Respiratory failure [Recovered/Resolved]
  - Loss of consciousness [Recovered/Resolved]
  - Skin lesion [Recovered/Resolved]
  - Rash erythematous [Recovered/Resolved]
  - Encephalopathy [Recovered/Resolved]
  - Agitation [Recovered/Resolved]
  - Hepatic necrosis [Recovered/Resolved]
  - Unresponsive to stimuli [Recovered/Resolved]
  - Hyperventilation [Recovered/Resolved]
  - Heparin-induced thrombocytopenia [Recovered/Resolved]
  - Venous thrombosis [Recovered/Resolved]
  - Thrombocytopenia [Recovered/Resolved]
